FAERS Safety Report 22931636 (Version 2)
Quarter: 2023Q4

REPORT INFORMATION
  Report Type: Other
  Country: IE (occurrence: IE)
  Receive Date: 20230911
  Receipt Date: 20231010
  Transmission Date: 20240110
  Serious: Yes (Hospitalization)
  Sender: FDA-Public Use
  Company Number: IE-Albireo AB-2023ALB000209

PATIENT
  Age: 0 Year
  Sex: Female

DRUGS (7)
  1. ODEVIXIBAT [Suspect]
     Active Substance: ODEVIXIBAT
     Indication: Alagille syndrome
     Dosage: 40 MCG/KG DAILY
     Route: 048
     Dates: start: 2023, end: 20230605
  2. ODEVIXIBAT [Suspect]
     Active Substance: ODEVIXIBAT
     Dosage: 80 MCG/KG DAILY
     Route: 048
     Dates: start: 20230606, end: 20230719
  3. ODEVIXIBAT [Suspect]
     Active Substance: ODEVIXIBAT
     Dosage: 40 MCG/KG DAILY
     Route: 048
     Dates: start: 20230720
  4. URSODIOL [Concomitant]
     Active Substance: URSODIOL
     Indication: Pruritus
     Route: 065
     Dates: start: 202301
  5. RIFAMPIN [Concomitant]
     Active Substance: RIFAMPIN
     Indication: Pruritus
     Dosage: 10 MG/KG DAILY
     Route: 065
     Dates: start: 202301
  6. PARAVIT CF [Concomitant]
     Indication: Cholestasis
     Route: 065
     Dates: start: 202301
  7. VITAMIN K [Concomitant]
     Active Substance: PHYTONADIONE
     Indication: Cholestasis
     Route: 065
     Dates: start: 202301

REACTIONS (3)
  - Diarrhoea [Recovering/Resolving]
  - Blood sodium decreased [Recovered/Resolved]
  - Vomiting [Recovered/Resolved]

NARRATIVE: CASE EVENT DATE: 20230710
